FAERS Safety Report 25940082 (Version 1)
Quarter: 2025Q4

REPORT INFORMATION
  Report Type: Spontaneous
  Country: US (occurrence: US)
  Receive Date: 20251020
  Receipt Date: 20251020
  Transmission Date: 20260117
  Serious: No
  Sender: GALDERMA
  Company Number: US-GALDERMA-US2025018727

PATIENT

DRUGS (2)
  1. NEMLUVIO [Suspect]
     Active Substance: NEMOLIZUMAB-ILTO
     Indication: Neurodermatitis
     Route: 058
  2. NEMLUVIO [Suspect]
     Active Substance: NEMOLIZUMAB-ILTO
     Dosage: 30 MILLIGRAM (TOOK ONE DOSE AT THE 2 WEEKS)
     Route: 058

REACTIONS (3)
  - Neurodermatitis [Not Recovered/Not Resolved]
  - Rash papular [Not Recovered/Not Resolved]
  - Inappropriate schedule of product administration [Recovered/Resolved]
